FAERS Safety Report 9417444 (Version 1)
Quarter: 2013Q3

REPORT INFORMATION
  Report Type: Spontaneous
  Country: US (occurrence: US)
  Receive Date: 20130724
  Receipt Date: 20130724
  Transmission Date: 20140515
  Serious: No
  Sender: FDA-Public Use
  Company Number: US-MYLANLABS-2013S1003359

PATIENT
  Age: 83 Year
  Sex: Male
  Weight: 88.23 kg

DRUGS (9)
  1. ZALEPLON [Suspect]
     Indication: INSOMNIA
     Dosage: PRN
     Dates: start: 20121215, end: 20121224
  2. ZALEPLON [Suspect]
     Indication: INSOMNIA
     Dosage: PRN
     Dates: start: 20121215, end: 20121224
  3. LIPITOR [Concomitant]
  4. DIOVAN [Concomitant]
  5. FLOMAX /01280302/ [Concomitant]
  6. AMLODIPINE [Concomitant]
  7. LEVOTHYROXINE [Concomitant]
  8. ASPIRIN [Concomitant]
  9. PEPCID [Concomitant]

REACTIONS (9)
  - Insomnia [Recovered/Resolved]
  - Unevaluable event [Recovered/Resolved]
  - Dizziness [Recovered/Resolved]
  - Feeling abnormal [Recovered/Resolved]
  - Somnambulism [Recovered/Resolved]
  - Gait disturbance [Recovered/Resolved]
  - Fall [Recovered/Resolved]
  - Tendonitis [Recovered/Resolved]
  - Disorientation [Recovered/Resolved]
